FAERS Safety Report 13636085 (Version 2)
Quarter: 2017Q3

REPORT INFORMATION
  Report Type: Spontaneous
  Country: FR (occurrence: FR)
  Receive Date: 20170609
  Receipt Date: 20170818
  Transmission Date: 20171127
  Serious: Yes (Hospitalization, Other)
  Sender: FDA-Public Use
  Company Number: FR-009507513-1706FRA000271

PATIENT
  Age: 72 Year
  Sex: Male

DRUGS (6)
  1. BISOPROLOL [Concomitant]
     Active Substance: BISOPROLOL
     Dosage: UNK
  2. KEPPRA [Suspect]
     Active Substance: LEVETIRACETAM
     Indication: GLIOBLASTOMA
     Dosage: 500 MG, 1 PER DAY
     Route: 048
     Dates: start: 201610
  3. FLECAINE [Suspect]
     Active Substance: FLECAINIDE
     Indication: ATRIAL FIBRILLATION
     Dosage: 100 MG, 1 PER DAY
     Route: 048
  4. SOLUPRED [Concomitant]
     Active Substance: PREDNISOLONE
     Dosage: UNK
  5. SILODYX [Concomitant]
     Active Substance: SILODOSIN
     Dosage: UNK
  6. TEMODAL [Suspect]
     Active Substance: TEMOZOLOMIDE
     Indication: GLIOBLASTOMA
     Dosage: 140 MG, 1 PER DAY
     Route: 048
     Dates: start: 20170117, end: 20170301

REACTIONS (3)
  - Lymphopenia [Not Recovered/Not Resolved]
  - Thrombocytopenia [Not Recovered/Not Resolved]
  - Agranulocytosis [Recovered/Resolved]

NARRATIVE: CASE EVENT DATE: 20170301
